FAERS Safety Report 9041947 (Version 1)
Quarter: 2013Q1

REPORT INFORMATION
  Report Type: Report from Study
  Country: US (occurrence: US)
  Receive Date: 20130129
  Receipt Date: 20130129
  Transmission Date: 20140127
  Serious: No
  Sender: FDA-Public Use
  Company Number: US-ABBOTT-12P-163-0901668-00

PATIENT
  Age: 45 Year
  Sex: Female
  Weight: 76.27 kg

DRUGS (15)
  1. HUMIRA 40 MG/0.8 ML PEN [Suspect]
     Indication: POLYCHONDRITIS
     Dates: start: 201101
  2. PREDNISONE [Concomitant]
     Indication: POLYCHONDRITIS
  3. EFFEXOR [Concomitant]
     Indication: MOOD SWINGS
  4. KLONOPIN [Concomitant]
     Indication: RESTLESS LEGS SYNDROME
  5. ADDERALL [Concomitant]
     Indication: DRUG THERAPY
  6. TRAZODONE [Concomitant]
     Indication: SLEEP DISORDER THERAPY
  7. LORTAB [Concomitant]
     Indication: PAIN
  8. FENTANYL PATCH [Concomitant]
     Indication: PAIN
  9. LISINOPRIL [Concomitant]
     Indication: HYPERTENSION
  10. NEXIUM [Concomitant]
     Indication: GASTROOESOPHAGEAL REFLUX DISEASE
  11. FOLTRATE [Concomitant]
     Indication: PROPHYLAXIS
  12. POTASSIUM [Concomitant]
     Indication: BLOOD POTASSIUM DECREASED
  13. LASIX [Concomitant]
     Indication: FLUID RETENTION
  14. CALCIUM [Concomitant]
     Indication: PROPHYLAXIS
  15. VITAMIN D [Concomitant]
     Indication: PROPHYLAXIS

REACTIONS (6)
  - Nasal congestion [Recovering/Resolving]
  - Off label use [Not Recovered/Not Resolved]
  - Polychondritis [Not Recovered/Not Resolved]
  - Cough [Recovering/Resolving]
  - Sneezing [Recovering/Resolving]
  - Lower respiratory tract infection [Recovering/Resolving]
